FAERS Safety Report 13398402 (Version 1)
Quarter: 2017Q2

REPORT INFORMATION
  Report Type: Spontaneous
  Country: DE (occurrence: DE)
  Receive Date: 20170403
  Receipt Date: 20170403
  Transmission Date: 20170830
  Serious: Yes (Hospitalization)
  Sender: FDA-Public Use
  Company Number: DE-EXELIXIS-CABO-17008693

PATIENT
  Age: 55 Year
  Sex: Male

DRUGS (13)
  1. RANEXA [Concomitant]
     Active Substance: RANOLAZINE
  2. CABOMETYX [Suspect]
     Active Substance: CABOZANTINIB S-MALATE
     Indication: RENAL CELL CARCINOMA
     Dosage: 60 MG, QD
     Route: 048
     Dates: start: 20170201
  3. RAMIPRIL. [Concomitant]
     Active Substance: RAMIPRIL
  4. CORVATON [Concomitant]
     Active Substance: MOLSIDOMINE
  5. ESIDRIX [Concomitant]
     Active Substance: HYDROCHLOROTHIAZIDE
  6. LEVOTHYROXIN [Concomitant]
     Active Substance: LEVOTHYROXINE
  7. VITAMIN D [Concomitant]
     Active Substance: CHOLECALCIFEROL
  8. AMLODIPIN [Concomitant]
     Active Substance: AMLODIPINE BESYLATE
  9. TAMULOSIN [Concomitant]
     Active Substance: TAMSULOSIN
  10. PANTOZOL [Concomitant]
     Active Substance: PANTOPRAZOLE SODIUM
  11. KALIUM [Concomitant]
     Active Substance: POTASSIUM CHLORIDE
  12. ASPIRIN. [Concomitant]
     Active Substance: ASPIRIN
  13. EBRANTIL [Concomitant]
     Active Substance: URAPIDIL

REACTIONS (2)
  - Hypomagnesaemia [Recovered/Resolved]
  - Hypocalcaemia [Recovered/Resolved]

NARRATIVE: CASE EVENT DATE: 20170322
